FAERS Safety Report 4409578-5 (Version None)
Quarter: 2004Q3

REPORT INFORMATION
  Report Type: 
  Country: None (occurrence: None)
  Receive Date: 20040728
  Receipt Date: 20020628
  Transmission Date: 20050211
  Serious: Yes (Death, Hospitalization)
  Sender: FDA-Public Use
  Company Number: US-AMGEN-02070024

PATIENT
  Sex: Female

DRUGS (2)
  1. ENBREL [Suspect]
     Indication: RHEUMATOID ARTHRITIS
     Dates: start: 20000222, end: 20020301
  2. ENBREL [Suspect]

REACTIONS (7)
  - ARTHRITIS INFECTIVE [None]
  - BACK PAIN [None]
  - CONDITION AGGRAVATED [None]
  - CYST [None]
  - RHEUMATOID ARTHRITIS [None]
  - SEPSIS [None]
  - SPINAL DISORDER [None]
